FAERS Safety Report 23588702 (Version 3)
Quarter: 2024Q2

REPORT INFORMATION
  Report Type: Spontaneous
  Country: AU (occurrence: AU)
  Receive Date: 20240302
  Receipt Date: 20240416
  Transmission Date: 20240716
  Serious: Yes (Disabling, Other)
  Sender: FDA-Public Use
  Company Number: AU-JNJFOC-20240265921

PATIENT
  Age: 3 Month
  Sex: Male
  Weight: 0.943 kg

DRUGS (12)
  1. BEDAQUILINE [Suspect]
     Active Substance: BEDAQUILINE
     Indication: Congenital tuberculosis
     Dosage: 30 MG DAILY FOR 2 WEEKS.
     Route: 048
     Dates: start: 20220414
  2. BEDAQUILINE [Suspect]
     Active Substance: BEDAQUILINE
     Dosage: 10 MG ON MON/WED/FRI.
     Route: 048
     Dates: start: 20220428
  3. BEDAQUILINE [Suspect]
     Active Substance: BEDAQUILINE
     Dosage: MAINTENANCE DOSE LATER INCREASED TO 20 MG ON MON/WED/FRI DUE TO INCREASED PATIENT WEIGHT.
     Route: 048
     Dates: start: 20220627, end: 20230215
  4. CLOFAZIMINE [Suspect]
     Active Substance: CLOFAZIMINE
     Indication: Congenital tuberculosis
     Dosage: 5MG/KG PO DAILY FROM WEEK 10, 11, 12, 13, 14, 15 AND MONTHS 5 TO 10
     Route: 048
     Dates: start: 20220330, end: 20221104
  5. DELAMANID [Suspect]
     Active Substance: DELAMANID
     Indication: Congenital tuberculosis
     Dosage: 12.5 MG PO DAILY FROM WEEK 5 TO 11
     Route: 048
     Dates: start: 20220218, end: 20220413
  6. DELAMANID [Suspect]
     Active Substance: DELAMANID
     Dosage: 25MG PO DAILY FROM WEEK 12-16 AND 5TH MONTH
     Route: 048
     Dates: start: 20220414, end: 20220614
  7. DELAMANID [Suspect]
     Active Substance: DELAMANID
     Dosage: 50MG PO IN 2 DIVIDED DOSES FROM MONTH 11 TO 13
     Route: 048
     Dates: start: 20220615, end: 20230215
  8. LINEZOLID [Suspect]
     Active Substance: LINEZOLID
     Indication: Congenital tuberculosis
     Dosage: 20MG/ML
     Route: 048
  9. LINEZOLID [Suspect]
     Active Substance: LINEZOLID
     Dosage: 600MG/300ML
     Route: 042
  10. LINEZOLID [Suspect]
     Active Substance: LINEZOLID
     Dosage: 15MG/KG IV/PO IN 2 DIVIDED DOSES FROM WEEK 3 TO 11
     Dates: start: 20220202, end: 20220410
  11. LINEZOLID [Suspect]
     Active Substance: LINEZOLID
     Dosage: 20MG/KG PO IN 2 DIVIDED DOSES FROM WEEK 12-16 AND MONTHS 5 AND 6
     Route: 048
     Dates: start: 20220411, end: 20220703
  12. LINEZOLID [Suspect]
     Active Substance: LINEZOLID
     Dosage: 15MG/KG PO DAILY GIVEN IN 12 AND 13 MONTH OF TREATMENT
     Route: 048
     Dates: start: 20221216, end: 20230215

REACTIONS (6)
  - Deafness neurosensory [Unknown]
  - Weight gain poor [Unknown]
  - Vomiting [Unknown]
  - Weight decreased [Unknown]
  - Off label use [Unknown]
  - Product use issue [Unknown]

NARRATIVE: CASE EVENT DATE: 20220521
